FAERS Safety Report 23356319 (Version 1)
Quarter: 2024Q1

REPORT INFORMATION
  Report Type: Spontaneous
  Country: US (occurrence: US)
  Receive Date: 20240102
  Receipt Date: 20240102
  Transmission Date: 20240410
  Serious: No
  Sender: FDA-Public Use
  Company Number: US-ELI_LILLY_AND_COMPANY-US202312015811

PATIENT
  Age: 49 Year
  Sex: Female

DRUGS (1)
  1. EMGALITY [Suspect]
     Active Substance: GALCANEZUMAB-GNLM
     Indication: Product used for unknown indication
     Dosage: 120 MG, UNKNOWN
     Route: 065

REACTIONS (5)
  - Underdose [Unknown]
  - Injection site pain [Unknown]
  - Injection site mass [Recovering/Resolving]
  - Injection site erythema [Unknown]
  - Injection site pruritus [Unknown]

NARRATIVE: CASE EVENT DATE: 20231225
